FAERS Safety Report 18762910 (Version 1)
Quarter: 2021Q1

REPORT INFORMATION
  Report Type: Spontaneous
  Country: US (occurrence: US)
  Receive Date: 20210120
  Receipt Date: 20210120
  Transmission Date: 20210419
  Serious: Yes (Hospitalization)
  Sender: FDA-Public Use
  Company Number: None

PATIENT
  Age: 83 Year
  Sex: Male
  Weight: 76.2 kg

DRUGS (9)
  1. AMBIEN [Concomitant]
     Active Substance: ZOLPIDEM TARTRATE
  2. PREDNISONE. [Concomitant]
     Active Substance: PREDNISONE
  3. MELOXICAM. [Concomitant]
     Active Substance: MELOXICAM
  4. HYDROCHLOROTHIAZIDE. [Concomitant]
     Active Substance: HYDROCHLOROTHIAZIDE
  5. IPRATROPIUM BROMIDE. [Concomitant]
     Active Substance: IPRATROPIUM BROMIDE
  6. ZYTIGA [Suspect]
     Active Substance: ABIRATERONE ACETATE
     Indication: PROSTATE CANCER
     Route: 048
     Dates: start: 20190103
  7. LUPRON DEPOT [Concomitant]
     Active Substance: LEUPROLIDE ACETATE
  8. XANAX [Concomitant]
     Active Substance: ALPRAZOLAM
  9. ANDROGEL [Concomitant]
     Active Substance: TESTOSTERONE

REACTIONS (2)
  - Femur fracture [None]
  - Hip fracture [None]

NARRATIVE: CASE EVENT DATE: 20210120
